FAERS Safety Report 5824550-6 (Version None)
Quarter: 2008Q3

REPORT INFORMATION
  Report Type: 
  Country: None (occurrence: None)
  Receive Date: 20080722
  Receipt Date: 20080710
  Transmission Date: 20090109
  Serious: Yes (Life-Threatening)
  Sender: FDA-Public Use
  Company Number: 1-16400901/MED-08129

PATIENT
  Sex: Male

DRUGS (1)
  1. ACETAZOLAMIDE TAB [Suspect]
     Indication: SPINOCEREBELLAR ATAXIA
     Dosage: 250 MG FOUR TIMES A DAY; ORAL
     Route: 048

REACTIONS (9)
  - ATAXIA [None]
  - CONDITION AGGRAVATED [None]
  - DIZZINESS [None]
  - DYSARTHRIA [None]
  - HYPERAMMONAEMIA [None]
  - METABOLIC ACIDOSIS [None]
  - METABOLIC ENCEPHALOPATHY [None]
  - NYSTAGMUS [None]
  - SOMNOLENCE [None]
